FAERS Safety Report 23979344 (Version 1)
Quarter: 2024Q2

REPORT INFORMATION
  Report Type: Spontaneous
  Country: CH (occurrence: CH)
  Receive Date: 20240615
  Receipt Date: 20240615
  Transmission Date: 20240715
  Serious: Yes (Life-Threatening, Hospitalization, Other)
  Sender: FDA-Public Use
  Company Number: None

PATIENT
  Age: 19 Year
  Sex: Male
  Weight: 58.7 kg

DRUGS (10)
  1. IBUPROFEN [Suspect]
     Active Substance: IBUPROFEN
     Indication: Respiratory tract infection
     Dosage: TIME INTERVAL: AS NECESSARY: MAXIMUM 3 TIMES DAILY, EXACT AMOUNT OF INTAKE UNKNOWN; AS NECESSARY
     Route: 048
     Dates: start: 20240316, end: 20240318
  2. CALCIUM CHLORIDE\MAGNESIUM CHLORIDE\MALIC ACID\POTASSIUM CHLORIDE\SODI [Concomitant]
     Active Substance: CALCIUM CHLORIDE\MAGNESIUM CHLORIDE\MALIC ACID\POTASSIUM CHLORIDE\SODIUM ACETATE\SODIUM CHLORIDE
     Indication: Product used for unknown indication
     Dosage: ROUTE OF ADMINISTRATION: INTRAVENOUS DRIP
     Route: 065
     Dates: start: 20240318, end: 20240322
  3. SODIUM PICOSULFATE [Concomitant]
     Active Substance: SODIUM PICOSULFATE
     Indication: Constipation
     Dosage: TIME INTERVAL: AS NECESSARY: ON DEMAND MEDICATION, MAX. 20 GTT/D, NO INTAKE DOCUMENTED ; AS NECES...
     Route: 048
     Dates: start: 20240318, end: 20240322
  4. CLARITHROMYCIN [Suspect]
     Active Substance: CLARITHROMYCIN
     Indication: Pneumonia mycoplasmal
     Dosage: DOSE UND ROUTE OF ADMINISTRATION UNKNOWN
     Route: 065
     Dates: start: 20240320, end: 20240322
  5. VIBRAMYCIN [Concomitant]
     Active Substance: DOXYCYCLINE
     Indication: Pneumonia mycoplasmal
     Dosage: 0-0-1
     Route: 048
     Dates: start: 20240322, end: 20240331
  6. CEFEPIME HYDROCHLORIDE [Suspect]
     Active Substance: CEFEPIME HYDROCHLORIDE
     Indication: Pneumonia mycoplasmal
     Dosage: DOSE AND PRODUCT UNKNOWN
     Route: 042
     Dates: start: 20240322, end: 20240325
  7. Makatussin [Concomitant]
     Indication: Cough
     Dosage: TIME INTERVAL: AS NECESSARY: ON DEMAND MEDICATION, 15 GTT EVERY 4 HOURS, MAX. 40 OGTT DAILY, NA I...
     Route: 048
     Dates: start: 20240318, end: 20240322
  8. DOMPERIDONE [Concomitant]
     Active Substance: DOMPERIDONE
     Indication: Nausea
     Dosage: TIME INTERVAL: AS NECESSARY: MEDICATION ON DEMAND, MAX. 3X DAILY 10 MG, NO INTAKE DOCUMENTED: AS ...
     Route: 048
     Dates: start: 20240318, end: 20240322
  9. SYMBICORT [Concomitant]
     Active Substance: BUDESONIDE\FORMOTEROL FUMARATE DIHYDRATE
     Indication: Product used for unknown indication
     Dosage: 200/6 2-0-2
     Route: 055
     Dates: start: 20240318, end: 20240322
  10. Redormin [Concomitant]
     Indication: Sleep disorder
     Dosage: TIME INTERVAL: AS NECESSARY: INGREDIENT (HUMULUS LUPULUS HOPS): 120MG; INGREDIENT (VALERIANA OFFI...
     Route: 048
     Dates: start: 20240318, end: 20240322

REACTIONS (6)
  - Agranulocytosis [Recovered/Resolved]
  - Thrombocytopenia [Recovered/Resolved]
  - Anaemia [Not Recovered/Not Resolved]
  - Toxicity to various agents [Recovered/Resolved]
  - Transaminases increased [Recovering/Resolving]
  - Neurological symptom [Recovered/Resolved]

NARRATIVE: CASE EVENT DATE: 20240322
